FAERS Safety Report 9223630 (Version 1)
Quarter: 2013Q2

REPORT INFORMATION
  Report Type: Spontaneous
  Country: US (occurrence: US)
  Receive Date: 20130409
  Receipt Date: 20130409
  Transmission Date: 20140414
  Serious: Yes (Hospitalization, Other)
  Sender: FDA-Public Use
  Company Number: US-RB-051913-13

PATIENT
  Age: 63 Year
  Sex: Female
  Weight: 189 kg

DRUGS (9)
  1. SUBOXONE TABLET [Suspect]
     Indication: DRUG DEPENDENCE
     Route: 060
     Dates: start: 2010, end: 2010
  2. CLONIDINE [Concomitant]
     Indication: HYPERTENSION
     Dosage: DOSING DETAILS UNKNOWN
     Route: 048
  3. LANTUS INSULIN [Concomitant]
     Indication: DIABETES MELLITUS
     Dosage: DOSING DETAILS UNKNOWN
     Route: 058
  4. METFORMIN [Concomitant]
     Indication: DIABETES MELLITUS
     Dosage: DOSING DETAILS UNKNOWN
     Route: 048
  5. GLIPIZIDE [Concomitant]
     Indication: DIABETES MELLITUS
     Dosage: DOSING DETALS UNKNOWN
     Route: 048
  6. GABAPENTIN [Concomitant]
     Indication: DIABETIC NEUROPATHY
     Dosage: DOSING DETAILS UNKNOWN
     Route: 048
  7. SIMVASTATIN [Concomitant]
     Indication: BLOOD CHOLESTEROL INCREASED
     Dosage: DOSING DETAILS UNKNOWN
     Route: 048
  8. POTASSIOUM SUPPLEMENT [Concomitant]
     Indication: CARDIAC DISORDER
     Dosage: DOSING DETAILS UNKNOWN
     Route: 048
  9. ASPIRIN [Concomitant]
     Indication: CARDIAC DISORDER
     Dosage: DOSING DETAILS UNKNOWN
     Route: 048

REACTIONS (3)
  - Oedema [Recovered/Resolved]
  - Cardiac failure [Recovered/Resolved]
  - Thrombosis [Recovered/Resolved]
